FAERS Safety Report 11729955 (Version 9)
Quarter: 2016Q4

REPORT INFORMATION
  Report Type: Report from Study
  Country: US (occurrence: US)
  Receive Date: 20151112
  Receipt Date: 20161116
  Transmission Date: 20170206
  Serious: Yes (Hospitalization)
  Sender: FDA-Public Use
  Company Number: US-ACTELION-A-NJ2015-127076

PATIENT
  Age: 57 Year
  Sex: Female

DRUGS (11)
  1. OPSUMIT [Suspect]
     Active Substance: MACITENTAN
     Indication: PULMONARY ARTERIAL HYPERTENSION
     Dosage: 10 MG, QD
     Route: 048
     Dates: start: 20150511
  2. ADCIRCA [Concomitant]
     Active Substance: TADALAFIL
  3. NORVASC [Concomitant]
     Active Substance: AMLODIPINE BESYLATE
  4. OPSUMIT [Suspect]
     Active Substance: MACITENTAN
     Dosage: 10 MG, QD
     Route: 048
  5. REMODULIN [Concomitant]
     Active Substance: TREPROSTINIL
  6. CEFAZOLIN [Concomitant]
     Active Substance: CEFAZOLIN
     Dosage: UNK
     Dates: start: 20160809
  7. ROCEPHIN [Concomitant]
     Active Substance: CEFTRIAXONE SODIUM
  8. PERCOCET [Concomitant]
     Active Substance: ACETAMINOPHEN\OXYCODONE HYDROCHLORIDE
     Dosage: UNK
     Dates: start: 20160810
  9. LASIX [Concomitant]
     Active Substance: FUROSEMIDE
     Dosage: UNK, BID
  10. VERAPAMIL [Concomitant]
     Active Substance: VERAPAMIL HYDROCHLORIDE
     Dosage: UNK
     Dates: start: 20160426
  11. LOVENOX [Concomitant]
     Active Substance: ENOXAPARIN SODIUM
     Dosage: UNK
     Dates: start: 20160806

REACTIONS (21)
  - Hypoxia [Recovered/Resolved]
  - Activities of daily living impaired [Unknown]
  - Wheezing [Recovered/Resolved]
  - Disease progression [Unknown]
  - Muscle spasms [Unknown]
  - Productive cough [Recovered/Resolved]
  - Syncope [Recovered/Resolved]
  - Chest pain [Unknown]
  - Bronchitis [Unknown]
  - Pneumonia respiratory syncytial viral [Recovered/Resolved]
  - Multiple allergies [Unknown]
  - Chills [Recovered/Resolved]
  - Weight increased [Recovered/Resolved]
  - Pulmonary arterial hypertension [Unknown]
  - Dyspnoea [Unknown]
  - Chest discomfort [Recovered/Resolved]
  - Dyspepsia [Unknown]
  - Fatigue [Recovered/Resolved]
  - Asthenia [Unknown]
  - Headache [Unknown]
  - Pneumonia [Unknown]

NARRATIVE: CASE EVENT DATE: 20151030
